FAERS Safety Report 7090164-6 (Version None)
Quarter: 2010Q4

REPORT INFORMATION
  Report Type: 
  Country: None (occurrence: None)
  Receive Date: 20101105
  Receipt Date: 20101105
  Transmission Date: 20110411
  Serious: No
  Sender: FDA-Public Use
  Company Number: None

PATIENT
  Age: 55 Year
  Sex: Male
  Weight: 107.0489 kg

DRUGS (1)
  1. RISPERDAL CONSTA [Suspect]
     Indication: SCHIZOPHRENIA, PARANOID TYPE
     Dosage: 25MG Q2WEEK IM - DELTOID
     Route: 030
     Dates: start: 20101026

REACTIONS (3)
  - DEVICE CONNECTION ISSUE [None]
  - DEVICE LEAKAGE [None]
  - INCORRECT DOSE ADMINISTERED [None]
